FAERS Safety Report 18922256 (Version 1)
Quarter: 2021Q1

REPORT INFORMATION
  Report Type: Spontaneous
  Country: US (occurrence: US)
  Receive Date: 20210216
  Receipt Date: 20210216
  Transmission Date: 20210420
  Serious: Yes (Other)
  Sender: FDA-Public Use
  Company Number: None

PATIENT

DRUGS (1)
  1. VERSED [Suspect]
     Active Substance: MIDAZOLAM HYDROCHLORIDE

REACTIONS (2)
  - Circumstance or information capable of leading to medication error [None]
  - Product name confusion [None]

NARRATIVE: CASE EVENT DATE: 20210216
